FAERS Safety Report 24256062 (Version 1)
Quarter: 2024Q3

REPORT INFORMATION
  Report Type: Spontaneous
  Country: US (occurrence: US)
  Receive Date: 20240827
  Receipt Date: 20240827
  Transmission Date: 20241017
  Serious: No
  Sender: SANDOZ
  Company Number: US-SANDOZ-SDZ2024US075292

PATIENT

DRUGS (2)
  1. DUPIXENT [Interacting]
     Active Substance: DUPILUMAB
     Indication: Product used for unknown indication
     Dosage: WEEKLY
     Route: 065
  2. PANTOPRAZOLE SODIUM [Interacting]
     Active Substance: PANTOPRAZOLE SODIUM
     Indication: Product used for unknown indication
     Dosage: 40MG, 1H BEFORE BREAKFAST AND ANOTHER 1H BEFORE DINNER
     Route: 065

REACTIONS (1)
  - Drug interaction [Unknown]
